FAERS Safety Report 6802088-7 (Version None)
Quarter: 2010Q2

REPORT INFORMATION
  Report Type: 
  Country: None (occurrence: None)
  Receive Date: 20100629
  Receipt Date: 20071024
  Transmission Date: 20101027
  Serious: Yes (Hospitalization, Other)
  Sender: FDA-Public Use
  Company Number: US-PFIZER INC-2006150343

PATIENT
  Sex: Female
  Weight: 90.7 kg

DRUGS (4)
  1. BEXTRA [Suspect]
     Indication: BACK PAIN
     Route: 048
     Dates: start: 20030520
  2. VIOXX [Suspect]
     Indication: BACK PAIN
     Route: 048
     Dates: start: 20030101
  3. VIOXX [Suspect]
     Indication: NECK PAIN
  4. VICODIN [Concomitant]
     Dates: start: 19930101

REACTIONS (1)
  - MYOCARDIAL INFARCTION [None]
